FAERS Safety Report 16822568 (Version 1)
Quarter: 2019Q3

REPORT INFORMATION
  Report Type: Spontaneous
  Country: US (occurrence: US)
  Receive Date: 20190918
  Receipt Date: 20190918
  Transmission Date: 20191005
  Serious: No
  Sender: FDA-Public Use
  Company Number: US-PFIZER INC-2019399461

PATIENT
  Age: 61 Year
  Sex: Female
  Weight: 71.21 kg

DRUGS (1)
  1. RELPAX [Suspect]
     Active Substance: ELETRIPTAN HYDROBROMIDE
     Indication: MIGRAINE
     Dosage: 40 MG, AS NEEDED
     Route: 048

REACTIONS (9)
  - Recalled product administered [Unknown]
  - Impaired work ability [Unknown]
  - Laryngitis [Recovering/Resolving]
  - Hunger [Unknown]
  - Nausea [Unknown]
  - Influenza [Unknown]
  - Decreased appetite [Unknown]
  - Malaise [Recovered/Resolved]
  - Bronchitis [Recovering/Resolving]

NARRATIVE: CASE EVENT DATE: 20190701
